FAERS Safety Report 23744976 (Version 3)
Quarter: 2024Q2

REPORT INFORMATION
  Report Type: Report from Study
  Country: US (occurrence: US)
  Receive Date: 20240415
  Receipt Date: 20240614
  Transmission Date: 20240715
  Serious: Yes (Hospitalization)
  Sender: FDA-Public Use
  Company Number: US-BIOGEN-2024BI01259702

PATIENT
  Age: 76 Year
  Sex: Male
  Weight: 81.9 kg

DRUGS (54)
  1. VUMERITY [Suspect]
     Active Substance: DIROXIMEL FUMARATE
     Indication: Multiple sclerosis
     Dosage: TAKE 2 CAPSULES (462MG) BY MOUTH TWICE DAILY.
     Route: 050
     Dates: start: 20210917, end: 20220715
  2. VUMERITY [Suspect]
     Active Substance: DIROXIMEL FUMARATE
     Dosage: TAKE 2 CAPSULES (462MG) BY MOUTH TWICE DAILY.
     Route: 050
     Dates: start: 20230504, end: 20230603
  3. VUMERITY [Suspect]
     Active Substance: DIROXIMEL FUMARATE
     Dosage: TAKE 2 CAPSULES (462MG) BY MOUTH TWICE DAILY.
     Route: 050
     Dates: start: 20240228, end: 20240604
  4. VUMERITY [Suspect]
     Active Substance: DIROXIMEL FUMARATE
     Dosage: TAKE 2 CAPSULES (462MG) BY MOUTH TWICE DAILY.
     Route: 050
  5. LOSARTAN POTASSIUM/HYDROC [Concomitant]
     Indication: Product used for unknown indication
     Route: 050
  6. DULOXETINE HYDROCHLORIDE [Concomitant]
     Active Substance: DULOXETINE HYDROCHLORIDE
     Indication: Product used for unknown indication
     Route: 050
  7. LYRICA [Concomitant]
     Active Substance: PREGABALIN
     Indication: Product used for unknown indication
     Route: 050
     Dates: start: 20240228
  8. TYLENOL [Concomitant]
     Active Substance: ACETAMINOPHEN
     Indication: Pain
     Route: 050
     Dates: start: 20240424, end: 20240525
  9. TYLENOL [Concomitant]
     Active Substance: ACETAMINOPHEN
     Route: 050
     Dates: start: 20240325
  10. ECOTRIN (Aspirin EC) [Concomitant]
     Indication: Product used for unknown indication
     Route: 050
     Dates: start: 20240228, end: 20240604
  11. LIPITOR [Concomitant]
     Active Substance: ATORVASTATIN CALCIUM
     Indication: Product used for unknown indication
     Route: 050
     Dates: start: 20240228, end: 20240604
  12. CHOLECALCIFEROL [Concomitant]
     Active Substance: CHOLECALCIFEROL
     Indication: Product used for unknown indication
     Route: 050
     Dates: end: 20240228
  13. KLONOPIN [Concomitant]
     Active Substance: CLONAZEPAM
     Indication: Product used for unknown indication
     Route: 050
     Dates: end: 20240228
  14. IRON (ferrous sulphate) [Concomitant]
     Indication: Product used for unknown indication
     Route: 050
     Dates: start: 20240425
  15. COZAAR (losartan) [Concomitant]
     Indication: Product used for unknown indication
     Route: 050
     Dates: start: 20240228
  16. MELATONIN [Concomitant]
     Active Substance: MELATONIN
     Indication: Product used for unknown indication
     Dosage: AT BEDTIME
     Route: 050
     Dates: start: 20240424
  17. GLUCOPHAGE (Metformin) [Concomitant]
     Indication: Product used for unknown indication
     Route: 050
     Dates: start: 20240425, end: 20240604
  18. GLUCOPHAGE (Metformin) [Concomitant]
     Route: 050
     Dates: end: 20240228
  19. GLUCOPHAGE (Metformin) [Concomitant]
     Route: 050
  20. MICONAZOLE NITRATE [Concomitant]
     Active Substance: MICONAZOLE NITRATE
     Indication: Product used for unknown indication
     Dosage: APPLY ON GROIN
     Route: 050
     Dates: start: 20240424, end: 20240524
  21. REMERON [Concomitant]
     Active Substance: MIRTAZAPINE
     Indication: Product used for unknown indication
     Dosage: AT BEDTIME
     Route: 050
     Dates: start: 20240228, end: 20240604
  22. DITROPAN (oxybutynin) [Concomitant]
     Indication: Micturition urgency
     Route: 050
     Dates: start: 20240205
  23. SENOKOT [Concomitant]
     Active Substance: SENNOSIDES
     Indication: Product used for unknown indication
     Route: 050
  24. ZANAFLEX [Concomitant]
     Active Substance: TIZANIDINE HYDROCHLORIDE
     Indication: Muscle spasticity
     Dosage: 4MG IN AM, 4MG AT MIDDAY, 6MG IN AFTERNOON, 4MG IN EVENING FOR 5 DAYS, THEN 4MG AM, 4MG MIDDAY, 6...
     Route: 050
  25. ZANAFLEX [Concomitant]
     Active Substance: TIZANIDINE HYDROCHLORIDE
     Route: 050
     Dates: start: 20220421, end: 20220620
  26. FLOMAX [Concomitant]
     Active Substance: TAMSULOSIN HYDROCHLORIDE
     Indication: Product used for unknown indication
     Route: 050
     Dates: start: 20240424, end: 20240604
  27. NEUROMTIN (gabapentin) [Concomitant]
     Indication: Product used for unknown indication
     Route: 050
     Dates: end: 20240225
  28. BACTRIM DS [Concomitant]
     Active Substance: SULFAMETHOXAZOLE\TRIMETHOPRIM
     Indication: Product used for unknown indication
     Route: 050
     Dates: start: 20230319
  29. ZANAFLEX [Concomitant]
     Active Substance: TIZANIDINE HYDROCHLORIDE
     Indication: Product used for unknown indication
     Dosage: 4MG IN AM, 4MG AT MIDDAY, 6MG IN AFTERNOON, 4MG IN EVENING FOR 5 DAYS, THEN 4MG AM, 4MG MIDDAY, 6...
     Route: 050
     Dates: start: 20240506
  30. LACTATED RINGERS SOLUTION [Concomitant]
     Active Substance: CALCIUM CHLORIDE\POTASSIUM CHLORIDE\SODIUM CHLORIDE\SODIUM LACTATE
     Indication: Product used for unknown indication
     Route: 050
     Dates: start: 20240325
  31. ISOVUE 370 [Concomitant]
     Active Substance: IOPAMIDOL
     Indication: Product used for unknown indication
     Route: 050
     Dates: start: 20240325
  32. INSULIN LISPRO [Concomitant]
     Active Substance: INSULIN LISPRO
     Indication: Product used for unknown indication
     Dosage: AT BED TIME
     Route: 050
  33. NEXTERONE [Concomitant]
     Active Substance: AMIODARONE HYDROCHLORIDE
     Indication: Product used for unknown indication
     Route: 050
  34. ATROPINE SULFATE [Concomitant]
     Active Substance: ATROPINE SULFATE
     Indication: Product used for unknown indication
     Dosage: AS NEEDED
     Route: 050
  35. DEXTROSE [Concomitant]
     Active Substance: DEXTROSE\DEXTROSE MONOHYDRATE
     Indication: Product used for unknown indication
     Dosage: AS NEEDED
     Route: 050
  36. DEXTROSE [Concomitant]
     Active Substance: DEXTROSE\DEXTROSE MONOHYDRATE
     Indication: Product used for unknown indication
     Dosage: 16 TO 32 GRAM, AS NEEDED
     Route: 050
  37. HEPARIN [Concomitant]
     Active Substance: HEPARIN SODIUM
     Indication: Product used for unknown indication
     Dosage: 5000 UNITS
     Route: 050
  38. MAGNESIUM SULFATE [Concomitant]
     Active Substance: MAGNESIUM SULFATE\MAGNESIUM SULFATE HEPTAHYDRATE
     Indication: Product used for unknown indication
     Route: 050
  39. NITROSTAT [Concomitant]
     Active Substance: NITROGLYCERIN
     Indication: Product used for unknown indication
     Route: 050
  40. ZOFRAN [Concomitant]
     Active Substance: ONDANSETRON HYDROCHLORIDE
     Indication: Product used for unknown indication
     Route: 050
  41. ZOFRAN [Concomitant]
     Active Substance: ONDANSETRON HYDROCHLORIDE
     Route: 050
  42. DITROPAN [Concomitant]
     Active Substance: OXYBUTYNIN CHLORIDE
     Indication: Product used for unknown indication
     Route: 050
  43. DITROPAN [Concomitant]
     Active Substance: OXYBUTYNIN CHLORIDE
     Route: 050
  44. KLOR-CON [Concomitant]
     Active Substance: POTASSIUM CHLORIDE
     Indication: Product used for unknown indication
     Route: 050
  45. KLOR-CON [Concomitant]
     Active Substance: POTASSIUM CHLORIDE
     Route: 050
  46. COMPAZINE [Concomitant]
     Active Substance: PROCHLORPERAZINE MALEATE
     Indication: Product used for unknown indication
     Route: 050
  47. COMPAZINE [Concomitant]
     Active Substance: PROCHLORPERAZINE MALEATE
     Route: 050
  48. PHENERGAN [Concomitant]
     Active Substance: PROMETHAZINE HYDROCHLORIDE
     Indication: Product used for unknown indication
     Route: 050
  49. PHENERGAN [Concomitant]
     Active Substance: PROMETHAZINE HYDROCHLORIDE
     Route: 050
  50. SODIUM CHLORIDE [Concomitant]
     Active Substance: SODIUM CHLORIDE
     Indication: Product used for unknown indication
     Dosage: ONCE
     Route: 050
  51. SODIUM CHLORIDE [Concomitant]
     Active Substance: SODIUM CHLORIDE
     Route: 050
  52. DIOVAN [Concomitant]
     Active Substance: VALSARTAN
     Indication: Product used for unknown indication
     Route: 050
  53. PHENASEPTIC [Concomitant]
     Indication: Product used for unknown indication
     Dosage: 1.4 % SPRAY
     Route: 050
  54. BACTRIM [Concomitant]
     Active Substance: SULFAMETHOXAZOLE\TRIMETHOPRIM
     Indication: Product used for unknown indication
     Route: 050

REACTIONS (9)
  - Staphylococcal bacteraemia [Recovered/Resolved]
  - Pyelonephritis acute [Recovered/Resolved]
  - Urosepsis [Recovered/Resolved]
  - Calculus urethral [Unknown]
  - Acute kidney injury [Recovered/Resolved]
  - Device related infection [Unknown]
  - Hydronephrosis [Unknown]
  - Cystitis [Unknown]
  - Dermatitis [Unknown]

NARRATIVE: CASE EVENT DATE: 20240325
